FAERS Safety Report 7013557-1 (Version None)
Quarter: 2010Q3

REPORT INFORMATION
  Report Type: 
  Country: None (occurrence: None)
  Receive Date: 20100924
  Receipt Date: 20100922
  Transmission Date: 20110219
  Serious: Yes (Death, Hospitalization)
  Sender: FDA-Public Use
  Company Number: PHFR2010GB00468

PATIENT
  Sex: Male

DRUGS (8)
  1. CLOZARIL [Suspect]
     Indication: PSYCHOTIC DISORDER
     Dosage: 38 MG, UNK
     Route: 048
     Dates: start: 20061128
  2. RANITIDINE [Concomitant]
  3. CLOPIDOGREL [Concomitant]
     Dosage: UNK
     Route: 048
     Dates: start: 20070614
  4. METHOTREXATE [Concomitant]
     Dosage: 10 MG, QW
     Route: 048
     Dates: start: 20070614
  5. FOLIC ACID [Concomitant]
     Dosage: 5 MG, QW
     Route: 048
     Dates: start: 20080410
  6. LORAZEPAM [Concomitant]
     Dosage: 1 MG, PRN
     Dates: start: 20070621
  7. FORTISIP [Concomitant]
     Dosage: UNK
     Route: 048
     Dates: start: 20091221
  8. MIRTAZAPINE [Concomitant]
     Dosage: 4.5 MG, BID
     Route: 048
     Dates: start: 20061031

REACTIONS (11)
  - COMA [None]
  - COUGH [None]
  - DECREASED APPETITE [None]
  - DEMENTIA [None]
  - GENERAL PHYSICAL HEALTH DETERIORATION [None]
  - LOWER RESPIRATORY TRACT INFECTION [None]
  - MELAENA [None]
  - PARKINSON'S DISEASE [None]
  - PNEUMONIA [None]
  - RALES [None]
  - UPPER GASTROINTESTINAL HAEMORRHAGE [None]
